FAERS Safety Report 25803001 (Version 1)
Quarter: 2025Q3

REPORT INFORMATION
  Report Type: Spontaneous
  Country: EU (occurrence: EU)
  Receive Date: 20250915
  Receipt Date: 20250915
  Transmission Date: 20251021
  Serious: Yes (Hospitalization)
  Sender: ALEXION PHARMACEUTICALS
  Company Number: None

PATIENT
  Age: 68 Year
  Sex: Male

DRUGS (2)
  1. TICAGRELOR [Interacting]
     Active Substance: TICAGRELOR
     Indication: Myocardial ischaemia
     Dosage: 2 DOSAGE FORM, BID
     Dates: start: 202506
  2. ROSUVASTATIN CALCIUM [Interacting]
     Active Substance: ROSUVASTATIN CALCIUM
     Indication: Myocardial ischaemia
     Dosage: 1 DOSAGE FORM, QD
     Dates: end: 20250827

REACTIONS (1)
  - Rhabdomyolysis [Recovered/Resolved]

NARRATIVE: CASE EVENT DATE: 20250818
